FAERS Safety Report 19488697 (Version 5)
Quarter: 2022Q1

REPORT INFORMATION
  Report Type: Spontaneous
  Country: US (occurrence: US)
  Receive Date: 20210703
  Receipt Date: 20220303
  Transmission Date: 20220423
  Serious: Yes (Other)
  Sender: FDA-Public Use
  Company Number: US-BOEHRINGERINGELHEIM-2021-BI-103324

PATIENT
  Age: 51 Year
  Sex: Male

DRUGS (2)
  1. COMBIVENT RESPIMAT [Suspect]
     Active Substance: ALBUTEROL SULFATE\IPRATROPIUM BROMIDE
     Indication: Asthma
     Route: 055
     Dates: start: 2002
  2. COMBIVENT RESPIMAT [Suspect]
     Active Substance: ALBUTEROL SULFATE\IPRATROPIUM BROMIDE
     Route: 055
     Dates: start: 2019

REACTIONS (6)
  - Myocardial infarction [Recovering/Resolving]
  - Off label use [Not Recovered/Not Resolved]
  - Pneumonia [Not Recovered/Not Resolved]
  - Intentional product use issue [Unknown]
  - Product preparation error [Unknown]
  - Product quality issue [Unknown]

NARRATIVE: CASE EVENT DATE: 20020101
